FAERS Safety Report 16333579 (Version 4)
Quarter: 2019Q4

REPORT INFORMATION
  Report Type: Report from Study
  Country: US (occurrence: US)
  Receive Date: 20190520
  Receipt Date: 20191118
  Transmission Date: 20200122
  Serious: Yes (Other)
  Sender: FDA-Public Use
  Company Number: US-ALEXION PHARMACEUTICALS INC.-A201907555

PATIENT
  Sex: Female

DRUGS (2)
  1. SOLIRIS [Suspect]
     Active Substance: ECULIZUMAB
     Indication: PAROXYSMAL NOCTURNAL HAEMOGLOBINURIA
     Dosage: 900 MG, Q2W
     Route: 042
  2. SOLIRIS [Suspect]
     Active Substance: ECULIZUMAB
     Dosage: UNK, Q2W
     Route: 042

REACTIONS (13)
  - Heart valve incompetence [Unknown]
  - Poor venous access [Not Recovered/Not Resolved]
  - Blood bilirubin increased [Unknown]
  - Headache [Unknown]
  - Asthenia [Unknown]
  - Ocular icterus [Unknown]
  - Haemolysis [Unknown]
  - Malaise [Unknown]
  - Infection [Recovered/Resolved]
  - Pyrexia [Recovered/Resolved]
  - Tuberculosis [Not Recovered/Not Resolved]
  - Haemoglobin decreased [Recovered/Resolved]
  - Neck pain [Not Recovered/Not Resolved]
